FAERS Safety Report 24196875 (Version 1)
Quarter: 2024Q3

REPORT INFORMATION
  Report Type: Spontaneous
  Country: CA (occurrence: CA)
  Receive Date: 20240810
  Receipt Date: 20240810
  Transmission Date: 20241016
  Serious: Yes (Other)
  Sender: TEVA
  Company Number: CA-TEVA-VS-3231005

PATIENT
  Age: 70 Year
  Sex: Female
  Weight: 65 kg

DRUGS (2)
  1. ZOLEDRONIC ACID [Suspect]
     Active Substance: ZOLEDRONIC ACID
     Indication: Adjuvant therapy
     Dosage: ONCE , SOLUTION INTRAVENOUS
     Route: 042
  2. LETROZOLE [Concomitant]
     Active Substance: LETROZOLE
     Indication: Product used for unknown indication
     Route: 065

REACTIONS (6)
  - Idiopathic orbital inflammation [Unknown]
  - Intracranial aneurysm [Unknown]
  - Eye pain [Unknown]
  - Meningioma [Unknown]
  - Visual impairment [Unknown]
  - Eye swelling [Unknown]
